FAERS Safety Report 4400548-X (Version None)
Quarter: 2004Q2

REPORT INFORMATION
  Report Type: 
  Country: None (occurrence: None)
  Receive Date: 20040618
  Receipt Date: 20040301
  Transmission Date: 20050107
  Serious: No
  Sender: FDA-Public Use
  Company Number: US-JNJFOC-20040300594

PATIENT
  Age: 55 Year
  Sex: Female
  Weight: 53.5244 kg

DRUGS (6)
  1. ORTHO EVRA [Suspect]
     Indication: CONTRACEPTION
     Dosage: 1 DOSE(S), 3 IN 4 WEEK, TRANSDERMAL
     Route: 062
     Dates: start: 20031201
  2. SYNTHROID [Concomitant]
  3. MULTIVITIAMIN (MULTIVITAMINS) [Concomitant]
  4. CALCIUM (CALCIUM) [Concomitant]
  5. DHEA (PRASTERONE) [Concomitant]
  6. MELATIONIN (MELATONIN) [Concomitant]

REACTIONS (1)
  - APPLICATION SITE REACTION [None]
